FAERS Safety Report 5593603-2 (Version None)
Quarter: 2008Q1

REPORT INFORMATION
  Report Type: 
  Country: None (occurrence: None)
  Receive Date: 20080116
  Receipt Date: 20080111
  Transmission Date: 20080703
  Serious: Yes (Hospitalization)
  Sender: FDA-Public Use
  Company Number: FR-BRISTOL-MYERS SQUIBB COMPANY-14018352

PATIENT
  Age: 86 Year
  Sex: Female

DRUGS (5)
  1. FOZITEC [Suspect]
     Route: 048
     Dates: end: 20071105
  2. DIAMICRON [Suspect]
     Indication: DIABETES MELLITUS
     Dates: end: 20071105
  3. LASIX [Suspect]
     Dosage: FORMULATION-TABLET
     Route: 048
     Dates: end: 20071105
  4. NOOTROPYL [Suspect]
     Dosage: FORMULATION-TABLET
     Dates: end: 20071105
  5. CIPROFLOXACIN HCL [Suspect]
     Indication: URINARY TRACT INFECTION
     Dates: end: 20071105

REACTIONS (4)
  - ALTERED STATE OF CONSCIOUSNESS [None]
  - DISORIENTATION [None]
  - HYPOGLYCAEMIA [None]
  - RENAL FAILURE ACUTE [None]
